FAERS Safety Report 20584765 (Version 5)
Quarter: 2022Q3

REPORT INFORMATION
  Report Type: Report from Study
  Country: CA (occurrence: CA)
  Receive Date: 20220311
  Receipt Date: 20220929
  Transmission Date: 20221027
  Serious: Yes (Hospitalization, Other)
  Sender: FDA-Public Use
  Company Number: CA-NOVARTISPH-NVSC2022CA056861

PATIENT
  Age: 64 Year
  Sex: Female
  Weight: 53.7 kg

DRUGS (5)
  1. COSENTYX [Suspect]
     Active Substance: SECUKINUMAB
     Indication: Psoriasis
     Dosage: UNK
     Route: 065
  2. HYDROMORPHONE [Concomitant]
     Active Substance: HYDROMORPHONE
     Indication: Product used for unknown indication
     Dosage: UNK, PRN
     Route: 048
     Dates: start: 20220317
  3. ASPIRIN [Concomitant]
     Active Substance: ASPIRIN
     Indication: Anticoagulant therapy
     Dosage: UNK
     Route: 065
     Dates: start: 20220211
  4. HEPARIN [Concomitant]
     Active Substance: HEPARIN SODIUM
     Indication: Anticoagulant therapy
     Dosage: UNK
     Route: 065
     Dates: start: 20220211
  5. ALTEPLASE [Concomitant]
     Active Substance: ALTEPLASE
     Indication: Product used for unknown indication
     Dosage: UNK
     Route: 042
     Dates: start: 20220211

REACTIONS (6)
  - Thrombosis [Unknown]
  - Cerebrovascular accident [Recovering/Resolving]
  - Arteriosclerosis [Recovering/Resolving]
  - Cytotoxic oedema [Unknown]
  - Ischaemia [Unknown]
  - Aortic valve stenosis [Unknown]

NARRATIVE: CASE EVENT DATE: 20220201
